FAERS Safety Report 16735602 (Version 1)
Quarter: 2019Q3

REPORT INFORMATION
  Report Type: Spontaneous
  Country: US (occurrence: US)
  Receive Date: 20190823
  Receipt Date: 20190823
  Transmission Date: 20191005
  Serious: No
  Sender: FDA-Public Use
  Company Number: None

PATIENT
  Age: 60 Year
  Sex: Female
  Weight: 58.5 kg

DRUGS (1)
  1. WIXELA INHUB [Suspect]
     Active Substance: FLUTICASONE PROPIONATE\SALMETEROL XINAFOATE
     Indication: ASTHMA
     Dosage: ?          OTHER STRENGTH:MSG;QUANTITY:1 PUFF(S);?
     Route: 055
     Dates: start: 20190601, end: 20190821

REACTIONS (2)
  - Product substitution issue [None]
  - Asthma [None]

NARRATIVE: CASE EVENT DATE: 20190820
